FAERS Safety Report 25664848 (Version 1)
Quarter: 2025Q3

REPORT INFORMATION
  Report Type: Spontaneous
  Country: US (occurrence: US)
  Receive Date: 20250811
  Receipt Date: 20250811
  Transmission Date: 20251020
  Serious: No
  Sender: TEVA
  Company Number: US-TEVA-VS-3359424

PATIENT
  Age: 65 Year
  Sex: Female

DRUGS (4)
  1. COPAXONE [Suspect]
     Active Substance: GLATIRAMER ACETATE
     Indication: Product used for unknown indication
     Route: 065
  2. BETASERON [Suspect]
     Active Substance: INTERFERON BETA-1B
     Indication: Product used for unknown indication
     Route: 065
  3. TECFIDERA [Suspect]
     Active Substance: DIMETHYL FUMARATE
     Indication: Product used for unknown indication
     Route: 065
  4. AVONEX [Suspect]
     Active Substance: INTERFERON BETA-1A
     Indication: Product used for unknown indication
     Route: 065

REACTIONS (4)
  - Condition aggravated [Unknown]
  - Product use issue [Unknown]
  - Treatment failure [Unknown]
  - Adverse drug reaction [Unknown]
